FAERS Safety Report 4850261-X (Version None)
Quarter: 2005Q4

REPORT INFORMATION
  Report Type: 
  Country: None (occurrence: None)
  Receive Date: 20051123
  Receipt Date: 20041130
  Transmission Date: 20060501
  Serious: Yes (Other)
  Sender: FDA-Public Use
  Company Number: 2004060702

PATIENT
  Age: 74 Year
  Sex: Male
  Weight: 80.7403 kg

DRUGS (10)
  1. LIPITOR [Suspect]
     Indication: ARTERIOSCLEROSIS
     Dosage: 10 MG (10 MG, 1 IN 1 D) ORAL
     Route: 048
     Dates: start: 20040304
  2. LIPITOR [Suspect]
     Indication: BLOOD CHOLESTEROL INCREASED
     Dosage: 10 MG (10 MG, 1 IN 1 D) ORAL
     Route: 048
     Dates: start: 20040304
  3. AMIODARONE HCL [Concomitant]
  4. LOTREL [Concomitant]
  5. DYAZIDE [Concomitant]
  6. THYROID TAB [Concomitant]
  7. FINASTERIDE [Concomitant]
  8. ACETYLSALICYLIC ACID SRT [Concomitant]
  9. ALPRAZOLAM [Concomitant]
  10. LEVOTHYROXINE SODIUM [Concomitant]

REACTIONS (5)
  - DEAFNESS [None]
  - EXCITABILITY [None]
  - MEMORY IMPAIRMENT [None]
  - PAIN IN EXTREMITY [None]
  - TENSION [None]
